FAERS Safety Report 8133511-6 (Version None)
Quarter: 2012Q1

REPORT INFORMATION
  Report Type: 
  Country: None (occurrence: None)
  Receive Date: 20120103
  Receipt Date: 20111111
  Transmission Date: 20120608
  Serious: No
  Sender: FDA-Public Use
  Company Number: AE-2011-003359

PATIENT
  Age: 61 Year
  Sex: Male
  Weight: 70.3075 kg

DRUGS (5)
  1. RIBAVIRIN [Concomitant]
  2. PEGASYS [Concomitant]
  3. SPIRIVA [Concomitant]
  4. INCIVEK [Suspect]
     Dosage: 2250 MG (750 MG,1 IN 8 HR),ORAL
     Route: 048
     Dates: start: 20111015
  5. ALBUTEROL [Concomitant]

REACTIONS (3)
  - DYSPNOEA [None]
  - HYPOAESTHESIA [None]
  - DYSPEPSIA [None]
